FAERS Safety Report 12252534 (Version 2)
Quarter: 2016Q2

REPORT INFORMATION
  Report Type: Report from Study
  Country: BR (occurrence: BR)
  Receive Date: 20160411
  Receipt Date: 20160527
  Transmission Date: 20160815
  Serious: No
  Sender: FDA-Public Use
  Company Number: PHHY2016BR046975

PATIENT
  Sex: Female
  Weight: 98 kg

DRUGS (3)
  1. SANDOSTATIN LAR DEPOT [Suspect]
     Active Substance: OCTREOTIDE ACETATE
     Dosage: 30 MG, UNK
     Route: 030
  2. SANDOSTATIN LAR DEPOT [Suspect]
     Active Substance: OCTREOTIDE ACETATE
     Indication: ACROMEGALY
     Dosage: 20 MG, QMO
     Route: 030
     Dates: start: 201506
  3. CABERGOLINE. [Concomitant]
     Active Substance: CABERGOLINE
     Indication: PRODUCT USED FOR UNKNOWN INDICATION
     Route: 065

REACTIONS (10)
  - Vulvovaginal burning sensation [Unknown]
  - Therapeutic response decreased [Unknown]
  - Weight decreased [Unknown]
  - Vulvovaginal discomfort [Unknown]
  - Chest discomfort [Unknown]
  - Influenza [Unknown]
  - Anaemia [Unknown]
  - Constipation [Unknown]
  - Bacterial vaginosis [Unknown]
  - Dizziness [Unknown]
